FAERS Safety Report 4452094-5 (Version None)
Quarter: 2004Q3

REPORT INFORMATION
  Report Type: 
  Country: None (occurrence: None)
  Receive Date: 20040916
  Receipt Date: 20040903
  Transmission Date: 20050211
  Serious: Yes (Life-Threatening, Hospitalization)
  Sender: FDA-Public Use
  Company Number: JP-JNJFOC-20040504234

PATIENT
  Sex: Male
  Weight: 62 kg

DRUGS (20)
  1. REMICADE [Suspect]
     Route: 041
  2. REMICADE [Suspect]
     Route: 041
  3. REMICADE [Suspect]
     Route: 041
  4. REMICADE [Suspect]
     Route: 041
  5. REMICADE [Suspect]
     Route: 041
  6. REMICADE [Suspect]
     Route: 041
  7. REMICADE [Suspect]
     Indication: RHEUMATOID ARTHRITIS
     Route: 041
  8. RHEUMATREX [Suspect]
     Route: 049
  9. RHEUMATREX [Suspect]
     Route: 049
  10. RHEUMATREX [Suspect]
     Route: 049
  11. RHEUMATREX [Suspect]
     Route: 049
  12. RHEUMATREX [Suspect]
     Indication: RHEUMATOID ARTHRITIS
     Route: 049
  13. PREDNISOLONE [Concomitant]
     Route: 049
  14. PREDNISOLONE [Concomitant]
     Indication: RHEUMATOID ARTHRITIS
     Dosage: 3 TABLETS
     Route: 049
  15. MOBIC [Concomitant]
     Route: 049
  16. MOBIC [Concomitant]
     Indication: RHEUMATOID ARTHRITIS
     Route: 049
  17. FOLIAMIN [Concomitant]
     Indication: PROPHYLAXIS
  18. TAKEPRON [Concomitant]
     Route: 049
  19. ISCOTIN [Concomitant]
     Indication: PROPHYLAXIS
     Route: 049
  20. PIDOXAL [Concomitant]
     Route: 049

REACTIONS (4)
  - DRUG INTERACTION [None]
  - PNEUMOCYSTIS CARINII INFECTION [None]
  - PNEUMONIA [None]
  - RASH [None]
